FAERS Safety Report 13261863 (Version 1)
Quarter: 2017Q1

REPORT INFORMATION
  Report Type: Report from Study
  Country: None (occurrence: US)
  Receive Date: 20170222
  Receipt Date: 20170222
  Transmission Date: 20170428
  Serious: Yes (Other)
  Sender: FDA-Public Use
  Company Number: US-ABBVIE-17P-163-1878817-00

PATIENT
  Age: 29 Year
  Sex: Female

DRUGS (1)
  1. LUPRON DEPOT [Suspect]
     Active Substance: LEUPROLIDE ACETATE
     Indication: ENDOMETRIOSIS
     Route: 065
     Dates: start: 201508, end: 201602

REACTIONS (4)
  - Pelvic pain [Recovered/Resolved]
  - Psychogenic seizure [Not Recovered/Not Resolved]
  - Endometriosis [Not Recovered/Not Resolved]
  - Complex partial seizures [Not Recovered/Not Resolved]

NARRATIVE: CASE EVENT DATE: 201508
